FAERS Safety Report 10948394 (Version 3)
Quarter: 2016Q1

REPORT INFORMATION
  Report Type: Spontaneous
  Country: AT (occurrence: AT)
  Receive Date: 20150324
  Receipt Date: 20160108
  Transmission Date: 20160525
  Serious: Yes (Hospitalization)
  Sender: FDA-Public Use
  Company Number: AT-PFIZER INC-2014291753

PATIENT
  Age: 82 Year
  Sex: Female
  Weight: 70 kg

DRUGS (14)
  1. MIRTAZAPINE. [Suspect]
     Active Substance: MIRTAZAPINE
     Dosage: 30 MG, UNK
     Route: 048
     Dates: start: 20140723, end: 20140729
  2. FRAGMIN [Suspect]
     Active Substance: DALTEPARIN SODIUM
     Dosage: 7500 MG, 2X/DAY
     Route: 058
     Dates: start: 201407, end: 20140818
  3. PYRIDOXINE HYDROCHLORIDE. [Concomitant]
     Active Substance: PYRIDOXINE HYDROCHLORIDE
     Dosage: 1 DF, 3X/DAY
     Dates: start: 201407, end: 20140722
  4. THYREX [Concomitant]
     Active Substance: LEVOTHYROXINE SODIUM
     Dosage: UNK
  5. MIRTAZAPINE. [Suspect]
     Active Substance: MIRTAZAPINE
     Dosage: 15 MG, UNK
     Route: 048
     Dates: start: 20140721, end: 20140722
  6. MOTRIM [Suspect]
     Active Substance: TRIMETHOPRIM
     Dosage: 400 MG, 2X/DAY
     Route: 048
     Dates: start: 20140725, end: 20140728
  7. PANTOPRAZOLE [Concomitant]
     Active Substance: PANTOPRAZOLE SODIUM
     Dosage: 20 MG, UNK
     Route: 048
  8. THYREX [Concomitant]
     Active Substance: LEVOTHYROXINE SODIUM
     Dosage: 125 UG, UNK
     Route: 048
     Dates: start: 20140718
  9. THYREX [Concomitant]
     Active Substance: LEVOTHYROXINE SODIUM
     Dosage: 100 UG, UNK
     Dates: end: 20140717
  10. MOTRIM [Suspect]
     Active Substance: TRIMETHOPRIM
     Dosage: 200 MG, 2X/DAY
     Route: 048
     Dates: start: 20140722, end: 20140724
  11. RATIOGASTRIM [Concomitant]
     Dosage: 1 DF (30MIO I.U./ML), UNK
     Dates: start: 20140804, end: 20140804
  12. IBANDRONATE SODIUM. [Concomitant]
     Active Substance: IBANDRONATE SODIUM
     Dosage: 150 MG, UNK
     Dates: end: 20140808
  13. MIRTAZAPINE. [Suspect]
     Active Substance: MIRTAZAPINE
     Dosage: 45 MG, UNK
     Route: 048
     Dates: start: 20140730, end: 20140803
  14. D-CALSOR [Concomitant]
     Dosage: 1 DF, UNK

REACTIONS (1)
  - Neutropenia [Unknown]

NARRATIVE: CASE EVENT DATE: 20140804
